FAERS Safety Report 10026677 (Version 1)
Quarter: 2014Q1

REPORT INFORMATION
  Report Type: Spontaneous
  Country: US (occurrence: US)
  Receive Date: 20140321
  Receipt Date: 20140321
  Transmission Date: 20141002
  Serious: No
  Sender: FDA-Public Use
  Company Number: US-009507513-1402USA011554

PATIENT
  Sex: Male

DRUGS (11)
  1. PEGINTRON [Suspect]
     Dosage: INJECT 150 MICROGRAM/0.5ML EVERY WEEK FOR THREE MONTHS
     Route: 058
  2. RIBASPHERE [Suspect]
     Dosage: UNK, STRENGTH: 200 MG
     Route: 048
  3. SOVALDI [Suspect]
     Dosage: , STRENGTH: 400 MGUNK
     Route: 048
  4. PRINIVIL [Concomitant]
     Dosage: UNK, STRENGTH: 2.5 MG
     Route: 048
  5. PAROXETINE [Concomitant]
     Dosage: UNK, STRENGTH: 10 MG
     Route: 048
  6. VITAMIN E [Concomitant]
     Dosage: UNK, STRENGTH: 1000 UNITS
     Route: 048
  7. VITAMIN A [Concomitant]
     Dosage: UNK, STRENGTH: 10000 UNITS
     Route: 048
  8. CYANOCOBALAMIN [Concomitant]
     Dosage: UNK, STRENGTH: 500 MICROGRAM
     Route: 048
  9. VITAMIN D (UNSPECIFIED) [Concomitant]
     Dosage: UNK, STRENGTH: 1000 UNITS
     Route: 048
  10. ASCORBIC ACID [Concomitant]
     Dosage: UNK, STRENGTH: 500 MG
     Route: 048
  11. CYANOCOBALAMIN [Concomitant]
     Dosage: UNK, STRENGTH: 100 MICROGRAM
     Route: 048

REACTIONS (2)
  - Influenza like illness [Unknown]
  - Headache [Unknown]
